FAERS Safety Report 8234454-X (Version None)
Quarter: 2012Q1

REPORT INFORMATION
  Report Type: 
  Country: None (occurrence: None)
  Receive Date: 20120326
  Receipt Date: 20120320
  Transmission Date: 20120608
  Serious: Yes (Death)
  Sender: FDA-Public Use
  Company Number: US-ELI_LILLY_AND_COMPANY-US201201005766

PATIENT
  Sex: Female

DRUGS (3)
  1. FOLIC ACID [Concomitant]
  2. ALIMTA [Suspect]
     Indication: LUNG NEOPLASM MALIGNANT
     Dosage: 750 MG, EVERY 3 WEEKS
     Dates: start: 20081108
  3. VITAMIN B-12 [Concomitant]

REACTIONS (1)
  - NEOPLASM PROGRESSION [None]
